FAERS Safety Report 19584941 (Version 1)
Quarter: 2021Q3

REPORT INFORMATION
  Report Type: Report from Study
  Country: None (occurrence: CO)
  Receive Date: 20210721
  Receipt Date: 20210721
  Transmission Date: 20211014
  Serious: Yes (Other)
  Sender: FDA-Public Use
  Company Number: CO-ABBVIE-21K-036-3999584-00

PATIENT
  Age: 22 Year
  Sex: Female
  Weight: 57 kg

DRUGS (7)
  1. VALPROIC ACID. [Concomitant]
     Active Substance: VALPROIC ACID
     Indication: AUTISM SPECTRUM DISORDER
  2. HUMIRA [Suspect]
     Active Substance: ADALIMUMAB
     Indication: HIDRADENITIS
     Route: 058
     Dates: start: 20200915, end: 20210707
  3. CLOZAPINE. [Concomitant]
     Active Substance: CLOZAPINE
     Indication: AUTISM SPECTRUM DISORDER
  4. CLONIDINE. [Concomitant]
     Active Substance: CLONIDINE
     Indication: AUTISM SPECTRUM DISORDER
  5. BIPERIDEN [Concomitant]
     Active Substance: BIPERIDEN
     Indication: AUTISM SPECTRUM DISORDER
  6. NULYTELY [Concomitant]
     Active Substance: POLYETHYLENE GLYCOL 3350\POTASSIUM CHLORIDE\SODIUM BICARBONATE\SODIUM CHLORIDE
     Indication: CONSTIPATION
  7. RISPERIDONE. [Concomitant]
     Active Substance: RISPERIDONE
     Indication: AUTISM SPECTRUM DISORDER

REACTIONS (4)
  - Pain [Recovering/Resolving]
  - Swelling [Recovering/Resolving]
  - Skin odour abnormal [Recovering/Resolving]
  - Ingrown hair [Recovering/Resolving]

NARRATIVE: CASE EVENT DATE: 202101
